FAERS Safety Report 8803527 (Version 1)
Quarter: 2012Q4

REPORT INFORMATION
  Report Type: 
  Country: US (occurrence: US)
  Receive Date: 20120924
  Receipt Date: 20120924
  Transmission Date: 20130627
  Serious: No
  Sender: FDA-Public Use
  Company Number: US-009507513-1209USA006038

PATIENT
  Age: 57 Year
  Sex: Female

DRUGS (1)
  1. SAPHRIS [Suspect]
     Dosage: 5 mg, bid
     Route: 058

REACTIONS (5)
  - Dysarthria [Unknown]
  - Disorientation [Unknown]
  - Gait disturbance [Unknown]
  - Dizziness [Unknown]
  - Confusional state [Unknown]
